FAERS Safety Report 17906279 (Version 9)
Quarter: 2021Q2

REPORT INFORMATION
  Report Type: Report from Study
  Country: CO (occurrence: CO)
  Receive Date: 20200616
  Receipt Date: 20210429
  Transmission Date: 20210717
  Serious: Yes (Life-Threatening, Other)
  Sender: FDA-Public Use
  Company Number: NVSC2020CO167638

PATIENT
  Age: 58 Year
  Sex: Female
  Weight: 56 kg

DRUGS (4)
  1. REVOLADE [Suspect]
     Active Substance: ELTROMBOPAG OLAMINE
     Dosage: 100 MG, QD (50 MG TABLET)
     Route: 048
     Dates: start: 20200731
  2. REVOLADE [Suspect]
     Active Substance: ELTROMBOPAG OLAMINE
     Dosage: 50 MG, QD
     Route: 048
     Dates: start: 20200722
  3. REVOLADE [Suspect]
     Active Substance: ELTROMBOPAG OLAMINE
     Dosage: 2 UNK, QD
     Route: 048
  4. REVOLADE [Suspect]
     Active Substance: ELTROMBOPAG OLAMINE
     Indication: APLASTIC ANAEMIA
     Dosage: 100 MG, QD
     Route: 048
     Dates: start: 201907

REACTIONS (20)
  - Platelet count abnormal [Recovered/Resolved]
  - Gingival bleeding [Recovered/Resolved]
  - White blood cell count decreased [Unknown]
  - Swelling face [Unknown]
  - Haemoglobin decreased [Unknown]
  - Product availability issue [Unknown]
  - Pain [Unknown]
  - Platelet count increased [Unknown]
  - Inflammation [Unknown]
  - Contusion [Unknown]
  - Mouth haemorrhage [Recovered/Resolved]
  - Stress [Unknown]
  - Incorrect dose administered [Unknown]
  - Headache [Recovered/Resolved]
  - Platelet count decreased [Unknown]
  - Choking [Unknown]
  - Immune system disorder [Unknown]
  - Product supply issue [Unknown]
  - Haemoglobin increased [Unknown]
  - Fear [Unknown]

NARRATIVE: CASE EVENT DATE: 20200703
